FAERS Safety Report 4815748-4 (Version None)
Quarter: 2005Q4

REPORT INFORMATION
  Report Type: 
  Country: None (occurrence: None)
  Receive Date: 20051031
  Receipt Date: 20030203
  Transmission Date: 20060501
  Serious: Yes (Hospitalization, Other)
  Sender: FDA-Public Use
  Company Number: 2003GB00402

PATIENT
  Age: 24875 Day
  Sex: Female
  Weight: 88 kg

DRUGS (12)
  1. ARIMIDEX [Suspect]
     Indication: BREAST CANCER
     Route: 048
     Dates: start: 19990106, end: 19990204
  2. CODEINE PHOSPHATE AND ACETAMINOPHEN [Concomitant]
     Indication: ANALGESIC EFFECT
  3. EXEMESTANE [Concomitant]
  4. WARFARIN [Concomitant]
  5. ATENOLOL [Concomitant]
     Indication: HYPERTENSION
     Dosage: STARTED FROM VISIT ONE
  6. BENDROFLUAZIDE [Concomitant]
     Indication: HYPERTENSION
     Dosage: STARTED FROM VISIT ONE
     Route: 048
  7. CEPHRADINE [Concomitant]
     Indication: WOUND INFECTION
     Route: 048
  8. ACETAMINOPHEN [Concomitant]
     Indication: ANALGESIC EFFECT
     Route: 048
  9. FERROGRAD [Concomitant]
     Indication: ANAEMIA
     Route: 048
  10. LACTULOSE [Concomitant]
     Indication: RECTAL HAEMORRHAGE
     Route: 054
  11. ANUSOL [Concomitant]
     Indication: RECTAL HAEMORRHAGE
     Route: 054
  12. KAPAKE [Concomitant]
     Indication: ANALGESIC EFFECT

REACTIONS (5)
  - ANAEMIA [None]
  - OSTEOARTHRITIS [None]
  - POST PROCEDURAL HAEMORRHAGE [None]
  - POSTOPERATIVE INFECTION [None]
  - RECTAL HAEMORRHAGE [None]
